FAERS Safety Report 22326163 (Version 1)
Quarter: 2023Q2

REPORT INFORMATION
  Report Type: Spontaneous
  Country: US (occurrence: US)
  Receive Date: 20230516
  Receipt Date: 20230516
  Transmission Date: 20230721
  Serious: No
  Sender: FDA-Public Use
  Company Number: US-RADIUS HEALTH INC.-2022US002610

PATIENT
  Sex: Female

DRUGS (1)
  1. TYMLOS [Suspect]
     Active Substance: ABALOPARATIDE
     Indication: Product used for unknown indication
     Dosage: 80 MCG, QD
     Route: 058
     Dates: start: 202205

REACTIONS (6)
  - Taste disorder [Unknown]
  - Fatigue [Unknown]
  - Nausea [Unknown]
  - Headache [Unknown]
  - Muscle spasms [Unknown]
  - Pain [Unknown]
